FAERS Safety Report 6315105-8 (Version None)
Quarter: 2009Q3

REPORT INFORMATION
  Report Type: 
  Country: None (occurrence: None)
  Receive Date: 20090819
  Receipt Date: 20090811
  Transmission Date: 20100115
  Serious: Yes (Death, Hospitalization, Other)
  Sender: FDA-Public Use
  Company Number: NO-PFIZER INC-2009204300

PATIENT

DRUGS (5)
  1. SUNITINIB MALATE [Suspect]
     Indication: METASTATIC RENAL CELL CARCINOMA
     Dosage: 50 MG, UNK
     Route: 048
  2. LYRICA [Concomitant]
     Indication: PAIN
     Dosage: 50 MG, 2X/DAY
     Route: 048
     Dates: start: 20081101
  3. DOLCONTIN [Concomitant]
     Indication: PAIN
     Dosage: 270 MG, 1X/DAY (150MG MORNING AND 120MG EVENING)
     Dates: start: 20081101
  4. MORFIN [Concomitant]
     Indication: PAIN
     Dosage: 40 MG, UNK
     Dates: start: 20081101
  5. PREDNISOLONE [Concomitant]
     Dosage: 20 MG, 1X/DAY

REACTIONS (2)
  - ABSCESS [None]
  - INFECTION [None]
